FAERS Safety Report 21035157 (Version 3)
Quarter: 2022Q3

REPORT INFORMATION
  Report Type: Spontaneous
  Country: US (occurrence: US)
  Receive Date: 20220701
  Receipt Date: 20220816
  Transmission Date: 20221026
  Serious: No
  Sender: FDA-Public Use
  Company Number: US-PFIZER INC-202200902948

PATIENT
  Age: 75 Year
  Sex: Female

DRUGS (1)
  1. PAXLOVID [Suspect]
     Active Substance: NIRMATRELVIR\RITONAVIR
     Indication: COVID-19 treatment
     Dosage: [PF-07321332 300 MG]/[RITONAVIR 100 MG]; 2X/DAY
     Route: 048

REACTIONS (10)
  - Lip blister [Unknown]
  - Oral discomfort [Unknown]
  - Dyspepsia [Unknown]
  - Anorectal disorder [Unknown]
  - Taste disorder [Unknown]
  - Product taste abnormal [Unknown]
  - Oral mucosal blistering [Unknown]
  - Gingival erythema [Unknown]
  - Gingival discomfort [Unknown]
  - Discomfort [Unknown]
